FAERS Safety Report 7068419-0 (Version None)
Quarter: 2010Q4

REPORT INFORMATION
  Report Type: 
  Country: None (occurrence: None)
  Receive Date: 20101028
  Receipt Date: 20101022
  Transmission Date: 20110411
  Serious: Yes (Hospitalization)
  Sender: FDA-Public Use
  Company Number: B0680746A

PATIENT
  Sex: Male

DRUGS (5)
  1. MALARONE [Suspect]
     Indication: MALARIA PROPHYLAXIS
     Route: 048
     Dates: start: 20100726, end: 20100811
  2. VASTEN [Concomitant]
     Dosage: 10MG PER DAY
     Route: 065
     Dates: start: 20030101, end: 20100814
  3. EZETROL [Concomitant]
     Dosage: 10MG PER DAY
     Route: 065
     Dates: start: 20050101, end: 20100814
  4. KARDEGIC [Concomitant]
     Dosage: 75MG PER DAY
     Route: 065
     Dates: start: 20050101, end: 20100813
  5. DIPROSONE [Concomitant]
     Route: 065

REACTIONS (14)
  - CHILLS [None]
  - COUGH [None]
  - DECREASED APPETITE [None]
  - DIARRHOEA [None]
  - DYSPNOEA [None]
  - EOSINOPHILIA [None]
  - ERYTHEMA [None]
  - FATIGUE [None]
  - HEPATIC ENZYME INCREASED [None]
  - HYPOAESTHESIA [None]
  - OEDEMA [None]
  - PRURITUS [None]
  - RASH GENERALISED [None]
  - SKIN EXFOLIATION [None]
